FAERS Safety Report 5542518-4 (Version None)
Quarter: 2007Q4

REPORT INFORMATION
  Report Type: 
  Country: None (occurrence: None)
  Receive Date: 20071210
  Receipt Date: 20071205
  Transmission Date: 20080405
  Serious: Yes (Death, Life-Threatening)
  Sender: FDA-Public Use
  Company Number: JP-GENENTECH-104762

PATIENT
  Sex: Female
  Weight: 51 kg

DRUGS (4)
  1. HERCEPTIN [Suspect]
     Indication: INFLAMMATORY CARCINOMA OF THE BREAST
     Route: 042
     Dates: start: 20021015, end: 20021015
  2. TOREMIFENE [Concomitant]
  3. FUROSEMIDE [Concomitant]
  4. INSULIN [Concomitant]

REACTIONS (2)
  - LUNG DISORDER [None]
  - MYOCARDIAL INFARCTION [None]
